FAERS Safety Report 5118642-7 (Version None)
Quarter: 2006Q4

REPORT INFORMATION
  Report Type: 
  Country: None (occurrence: None)
  Receive Date: 20061002
  Receipt Date: 20060926
  Transmission Date: 20070319
  Serious: Yes (Hospitalization)
  Sender: FDA-Public Use
  Company Number: FR-LMS-060148

PATIENT
  Age: 77 Year
  Sex: Female

DRUGS (6)
  1. NABUCOX [Suspect]
     Route: 048
  2. ALDACTAZINE [Suspect]
     Route: 048
     Dates: start: 20060812
  3. DUPHALAC [Concomitant]
     Route: 065
  4. LIPANTHYL [Concomitant]
     Route: 065
  5. LORAZEPAM [Concomitant]
     Route: 065
  6. MEDIATENSYL [Concomitant]
     Route: 065

REACTIONS (3)
  - ABDOMINAL PAIN [None]
  - HYPONATRAEMIA [None]
  - VOMITING [None]
